FAERS Safety Report 14983252 (Version 1)
Quarter: 2018Q2

REPORT INFORMATION
  Report Type: Spontaneous
  Country: US (occurrence: US)
  Receive Date: 20180607
  Receipt Date: 20180607
  Transmission Date: 20180711
  Serious: No
  Sender: FDA-Public Use
  Company Number: US-JNJFOC-20180535459

PATIENT
  Age: 85 Year
  Sex: Female
  Weight: 62.6 kg

DRUGS (2)
  1. TYLENOL EXTRA STRENGTH [Suspect]
     Active Substance: ACETAMINOPHEN
     Indication: PAIN
     Route: 065
  2. ONE-A-DAY [Concomitant]
     Active Substance: VITAMINS
     Indication: GENERAL PHYSICAL CONDITION ABNORMAL
     Route: 065

REACTIONS (2)
  - Incorrect dose administered [Unknown]
  - Pruritus [Recovering/Resolving]
